FAERS Safety Report 15254024 (Version 2)
Quarter: 2018Q3

REPORT INFORMATION
  Report Type: Spontaneous
  Country: US (occurrence: US)
  Receive Date: 20180808
  Receipt Date: 20180829
  Transmission Date: 20181010
  Serious: No
  Sender: FDA-Public Use
  Company Number: US-B.I. PHARMACEUTICALS,INC./RIDGEFIELD-2018-BI-039011

PATIENT
  Sex: Male

DRUGS (2)
  1. SPIRIVA [Suspect]
     Active Substance: TIOTROPIUM BROMIDE MONOHYDRATE
     Indication: CHRONIC OBSTRUCTIVE PULMONARY DISEASE
     Dosage: FORMULATION: CAPSULE ADMINISTRATION CORRECT? YES ACTION(S) TAKEN WITH PRODUCT: DRUG WITHDRAWN
     Route: 055
     Dates: end: 2014
  2. SPIRIVA [Suspect]
     Active Substance: TIOTROPIUM BROMIDE MONOHYDRATE
     Indication: BRONCHITIS CHRONIC

REACTIONS (3)
  - Drug effect incomplete [Recovered/Resolved]
  - Viral infection [Unknown]
  - Laryngeal disorder [Recovered/Resolved]

NARRATIVE: CASE EVENT DATE: 2014
